FAERS Safety Report 6182545-X (Version None)
Quarter: 2009Q2

REPORT INFORMATION
  Report Type: 
  Country: None (occurrence: None)
  Receive Date: 20090507
  Receipt Date: 20090429
  Transmission Date: 20091009
  Serious: Yes (Other)
  Sender: FDA-Public Use
  Company Number: US-PFIZER INC-2005140185

PATIENT
  Sex: Female
  Weight: 61 kg

DRUGS (10)
  1. PROVERA [Suspect]
     Indication: HORMONE REPLACEMENT THERAPY
     Dosage: 10 MG, UNK
     Route: 048
     Dates: start: 19960101, end: 20020101
  2. PREMARIN [Suspect]
     Indication: HORMONE REPLACEMENT THERAPY
     Dosage: 0.3 MG, UNK
     Dates: start: 19960101, end: 20020101
  3. PREMPRO [Suspect]
     Indication: HORMONE REPLACEMENT THERAPY
     Dosage: 0.625/2.5MG
     Dates: start: 19950101, end: 19960101
  4. PREDNISONE [Concomitant]
     Indication: SYSTEMIC LUPUS ERYTHEMATOSUS
     Dosage: UNK
     Dates: start: 19830101, end: 20050101
  5. NAPROXEN [Concomitant]
     Indication: ARTHRITIS
     Dosage: UNK
     Dates: start: 19810101
  6. PROTONIX [Concomitant]
     Indication: GASTROOESOPHAGEAL REFLUX DISEASE
     Dosage: UNK
     Dates: start: 19960101
  7. XANAX [Concomitant]
     Indication: ANXIETY
     Dosage: UNK
     Dates: start: 19990101
  8. FOSAMAX [Concomitant]
     Indication: OSTEOPOROSIS
     Dosage: UNK
     Dates: start: 19950101
  9. ACETYLSALICYLIC ACID [Concomitant]
     Dosage: UNK
     Dates: start: 20010101
  10. TOPROL-XL [Concomitant]
     Indication: ANXIETY
     Dosage: UNK
     Dates: start: 19960101, end: 20060101

REACTIONS (1)
  - BREAST CANCER IN SITU [None]
